FAERS Safety Report 7936577-9 (Version None)
Quarter: 2011Q4

REPORT INFORMATION
  Report Type: 
  Country: None (occurrence: None)
  Receive Date: 20111123
  Receipt Date: 20110903
  Transmission Date: 20120403
  Serious: No
  Sender: FDA-Public Use
  Company Number: US-BAYER-2011-088392

PATIENT
  Sex: Female

DRUGS (2)
  1. IBUPROFEN (ADVIL) [Suspect]
     Indication: UTERINE DISORDER
     Dosage: 2 DF, UNK
  2. ALEVE (CAPLET) [Suspect]
     Indication: UTERINE DISORDER

REACTIONS (1)
  - UTERINE DISORDER [None]
